FAERS Safety Report 8605453-0 (Version None)
Quarter: 2012Q3

REPORT INFORMATION
  Report Type: 
  Country: None (occurrence: None)
  Receive Date: 20120820
  Receipt Date: 20120815
  Transmission Date: 20120928
  Serious: Yes (Death)
  Sender: FDA-Public Use
  Company Number: CA-ABBOTT-12P-028-0965658-00

PATIENT
  Sex: Male
  Weight: 71.732 kg

DRUGS (4)
  1. LUPRON DEPOT [Suspect]
     Indication: PROSTATE CANCER
     Route: 030
     Dates: start: 20110803
  2. CASODEX [Concomitant]
     Indication: PRODUCT USED FOR UNKNOWN INDICATION
     Route: 048
     Dates: start: 20120723
  3. MICARDIS [Concomitant]
     Indication: HYPERTENSION
     Dates: start: 20090101
  4. CRESTOR [Concomitant]
     Indication: BLOOD CHOLESTEROL INCREASED
     Dates: start: 20090101

REACTIONS (26)
  - PAIN IN EXTREMITY [None]
  - CONSTIPATION [None]
  - NEURALGIA [None]
  - LYMPHADENOPATHY [None]
  - GAIT DISTURBANCE [None]
  - WEIGHT BEARING DIFFICULTY [None]
  - CONFUSIONAL STATE [None]
  - EUPHORIC MOOD [None]
  - JOINT SWELLING [None]
  - BACK PAIN [None]
  - WEIGHT DECREASED [None]
  - DIARRHOEA [None]
  - DECREASED APPETITE [None]
  - FATIGUE [None]
  - NIGHT SWEATS [None]
  - PALLOR [None]
  - PAIN [None]
  - MUSCULAR WEAKNESS [None]
  - MALAISE [None]
  - JOINT DESTRUCTION [None]
  - MOBILITY DECREASED [None]
  - PROSTATE CANCER METASTATIC [None]
  - GROIN PAIN [None]
  - LIVER FUNCTION TEST ABNORMAL [None]
  - ARTHRALGIA [None]
  - GENERAL PHYSICAL HEALTH DETERIORATION [None]
